FAERS Safety Report 12586823 (Version 2)
Quarter: 2016Q3

REPORT INFORMATION
  Report Type: Spontaneous
  Country: US (occurrence: US)
  Receive Date: 20160725
  Receipt Date: 20160919
  Transmission Date: 20161109
  Serious: No
  Sender: FDA-Public Use
  Company Number: US-PFIZER INC-2016352189

PATIENT
  Age: 50 Year
  Sex: Female

DRUGS (8)
  1. LYRICA [Suspect]
     Active Substance: PREGABALIN
     Dosage: 75 MG, 2X/DAY
  2. LYRICA [Suspect]
     Active Substance: PREGABALIN
     Dosage: 75 MG, 3X/DAY
  3. MORPHINE [Concomitant]
     Active Substance: MORPHINE
     Dosage: 30 MG, 2X/DAY (Q12 HRS)
  4. NABUMETONE. [Concomitant]
     Active Substance: NABUMETONE
     Dosage: 750 MG, AS NEEDED (1 TWICE A DAY )
  5. NABUMETONE. [Concomitant]
     Active Substance: NABUMETONE
     Dosage: 750 MG, 1X/DAY
  6. MS CONTIN [Concomitant]
     Active Substance: MORPHINE SULFATE
     Dosage: 30 MG, 2X/DAY (1 TABLET EVERY 12 HOURS)
  7. HYDROCODONE BITARTRATE AND ACETAMINOPHEN [Concomitant]
     Active Substance: ACETAMINOPHEN\HYDROCODONE BITARTRATE
     Dosage: UNK, 2X/DAY
  8. NORCO [Concomitant]
     Active Substance: ACETAMINOPHEN\HYDROCODONE BITARTRATE
     Dosage: 1 TABLET TWICE A DAY PRN

REACTIONS (9)
  - Anxiety [Unknown]
  - Insomnia [Unknown]
  - Arthralgia [Unknown]
  - Night sweats [Unknown]
  - Pain in extremity [Unknown]
  - Depression [Unknown]
  - Joint stiffness [Unknown]
  - Peripheral swelling [Unknown]
  - Hypoaesthesia [Unknown]
